FAERS Safety Report 8272753-6 (Version None)
Quarter: 2012Q2

REPORT INFORMATION
  Report Type: 
  Country: None (occurrence: None)
  Receive Date: 20120411
  Receipt Date: 20120409
  Transmission Date: 20120825
  Serious: Yes (Other)
  Sender: FDA-Public Use
  Company Number: US-AMGEN-USASP2012022284

PATIENT
  Sex: Female

DRUGS (4)
  1. PROLIA [Suspect]
     Indication: OSTEOPOROSIS POSTMENOPAUSAL
     Dosage: 60 MG, Q6MO
     Dates: start: 20110501
  2. SIMVASTATIN [Concomitant]
  3. LISINOPRIL [Concomitant]
     Indication: BLOOD PRESSURE
  4. METFORMIN HCL [Concomitant]
     Dates: start: 20050101

REACTIONS (2)
  - THROAT IRRITATION [None]
  - PHARYNGEAL OEDEMA [None]
